FAERS Safety Report 14664752 (Version 3)
Quarter: 2020Q1

REPORT INFORMATION
  Report Type: Spontaneous
  Country: JP (occurrence: JP)
  Receive Date: 20180321
  Receipt Date: 20200309
  Transmission Date: 20200409
  Serious: Yes (Death)
  Sender: FDA-Public Use
  Company Number: JP-ACTELION-A-CH2018-169404

PATIENT
  Age: 78 Year
  Sex: Male

DRUGS (12)
  1. LANSOPRAZOLE. [Concomitant]
     Active Substance: LANSOPRAZOLE
  2. CARBOCISTEINE [Concomitant]
     Active Substance: CARBOCYSTEINE
  3. BAKTAR [Concomitant]
     Active Substance: SULFAMETHOXAZOLE\TRIMETHOPRIM
  4. ALENDRONATE [Concomitant]
     Active Substance: ALENDRONATE SODIUM
  5. PREDNISOLONE. [Concomitant]
     Active Substance: PREDNISOLONE
  6. CELECOX [Concomitant]
     Active Substance: CELECOXIB
  7. ISOSORBIDE DINITRATE. [Concomitant]
     Active Substance: ISOSORBIDE DINITRATE
  8. PIRESPA [Concomitant]
     Active Substance: PIRFENIDONE
  9. OPSUMIT [Suspect]
     Active Substance: MACITENTAN
     Indication: PULMONARY HYPERTENSION
     Dosage: 10 MG, QD
     Route: 048
     Dates: start: 20180223, end: 20180307
  10. BAYASPIRIN [Concomitant]
     Active Substance: ASPIRIN
  11. OXYGEN. [Concomitant]
     Active Substance: OXYGEN
  12. MS CONTIN [Concomitant]
     Active Substance: MORPHINE SULFATE

REACTIONS (1)
  - Interstitial lung disease [Fatal]

NARRATIVE: CASE EVENT DATE: 20180307
